FAERS Safety Report 6056642-3 (Version None)
Quarter: 2009Q1

REPORT INFORMATION
  Report Type: 
  Country: None (occurrence: None)
  Receive Date: 20090129
  Receipt Date: 20090116
  Transmission Date: 20090719
  Serious: Yes (Hospitalization)
  Sender: FDA-Public Use
  Company Number: IT-PFIZER INC-2009154983

PATIENT
  Sex: Male
  Weight: 83 kg

DRUGS (1)
  1. SUNITINIB MALATE [Suspect]
     Indication: HEPATIC NEOPLASM MALIGNANT
     Dosage: 37.5 MG, CONTIN.
     Route: 048
     Dates: start: 20081113, end: 20090107

REACTIONS (1)
  - ANAEMIA [None]
